FAERS Safety Report 8321637-3 (Version None)
Quarter: 2012Q2

REPORT INFORMATION
  Report Type: 
  Country: None (occurrence: None)
  Receive Date: 20120430
  Receipt Date: 20091028
  Transmission Date: 20120825
  Serious: No
  Sender: FDA-Public Use
  Company Number: US-TEVA-2009011883

PATIENT
  Sex: Female

DRUGS (2)
  1. ORTHO CYCLEN-28 [Concomitant]
  2. NUVIGIL [Suspect]
     Dosage: 500 MILLIGRAM;
     Route: 048
     Dates: start: 20090824, end: 20090920

REACTIONS (3)
  - ANXIETY [None]
  - CONTUSION [None]
  - RESTLESSNESS [None]
